FAERS Safety Report 6852323-4 (Version None)
Quarter: 2010Q3

REPORT INFORMATION
  Report Type: 
  Country: None (occurrence: None)
  Receive Date: 20100717
  Receipt Date: 20071113
  Transmission Date: 20110219
  Serious: No
  Sender: FDA-Public Use
  Company Number: US-PFIZER INC-2007096596

PATIENT
  Sex: Female
  Weight: 46.4 kg

DRUGS (8)
  1. CHANTIX [Suspect]
     Indication: SMOKING CESSATION THERAPY
     Dates: start: 20071104
  2. REGLAN [Concomitant]
     Indication: HIATUS HERNIA
  3. REGLAN [Concomitant]
     Indication: ABDOMINAL DISCOMFORT
  4. ZANTAC [Concomitant]
     Indication: HIATUS HERNIA
  5. ZANTAC [Concomitant]
     Indication: ABDOMINAL DISCOMFORT
  6. ALBUTEROL [Concomitant]
     Indication: PROPHYLAXIS
  7. XALATAN [Concomitant]
     Indication: GLAUCOMA
  8. OSCAL [Concomitant]
     Indication: OSTEOPOROSIS

REACTIONS (5)
  - DRUG LABEL CONFUSION [None]
  - FATIGUE [None]
  - HEADACHE [None]
  - INSOMNIA [None]
  - NAUSEA [None]
